FAERS Safety Report 7911041-1 (Version None)
Quarter: 2011Q4

REPORT INFORMATION
  Report Type: 
  Country: None (occurrence: None)
  Receive Date: 20111114
  Receipt Date: 20111111
  Transmission Date: 20120403
  Serious: No
  Sender: FDA-Public Use
  Company Number: US-BIOGENIDEC-2011BI043247

PATIENT
  Age: 49 Year
  Sex: Male

DRUGS (2)
  1. TYSABRI [Suspect]
     Indication: MULTIPLE SCLEROSIS
     Route: 042
     Dates: start: 20101215
  2. TYSABRI [Suspect]
     Route: 042
     Dates: start: 20070726, end: 20100317

REACTIONS (1)
  - EXPANDED DISABILITY STATUS SCALE SCORE INCREASED [None]
